FAERS Safety Report 9845250 (Version 2)
Quarter: 2014Q1

REPORT INFORMATION
  Report Type: Spontaneous
  Country: IT (occurrence: None)
  Receive Date: 20140122
  Receipt Date: 20140221
  Transmission Date: 20141002
  Serious: Yes (Other)
  Sender: FDA-Public Use
  Company Number: AUR-APL-2014-00453

PATIENT
  Age: 41 Year
  Sex: Female

DRUGS (1)
  1. RISPERIDONE [Suspect]
     Indication: SCHIZOPHRENIA

REACTIONS (10)
  - Mastitis [None]
  - Granuloma [None]
  - Hyperprolactinaemia [None]
  - Breast mass [None]
  - Retracted nipple [None]
  - Peau d^orange [None]
  - Breast calcifications [None]
  - Breast oedema [None]
  - Breast abscess [None]
  - Haemangioma of liver [None]
